FAERS Safety Report 6156322-X (Version None)
Quarter: 2009Q2

REPORT INFORMATION
  Report Type: 
  Country: None (occurrence: None)
  Receive Date: 20090413
  Receipt Date: 20090319
  Transmission Date: 20091009
  Serious: Yes (Hospitalization)
  Sender: FDA-Public Use
  Company Number: OPER20090071

PATIENT
  Age: 28 Year
  Sex: Female

DRUGS (2)
  1. OPANA ER [Suspect]
     Indication: BACK PAIN
     Dosage: 30 MG, ONE TAB BID
  2. OXYCONTIN [Suspect]
     Indication: BACK PAIN
     Dosage: 120 MG, DAILY

REACTIONS (3)
  - ACCIDENTAL OVERDOSE [None]
  - DRUG ADMINISTRATION ERROR [None]
  - MALAISE [None]
